FAERS Safety Report 23863244 (Version 10)
Quarter: 2025Q1

REPORT INFORMATION
  Report Type: Spontaneous
  Country: CA (occurrence: CA)
  Receive Date: 20240516
  Receipt Date: 20250319
  Transmission Date: 20250409
  Serious: Yes (Death, Life-Threatening, Hospitalization, Disabling, Congenital Anomaly, Other)
  Sender: Haleon PLC
  Company Number: CA-002147023-NVSC2024CA082923

PATIENT
  Age: 46 Year
  Sex: Female
  Weight: 96 kg

DRUGS (297)
  1. DICLOFENAC SODIUM [Suspect]
     Active Substance: DICLOFENAC SODIUM
     Indication: Rheumatoid arthritis
     Route: 065
  2. DICLOFENAC SODIUM [Suspect]
     Active Substance: DICLOFENAC SODIUM
     Indication: Product used for unknown indication
     Route: 065
  3. DICLOFENAC SODIUM [Suspect]
     Active Substance: DICLOFENAC SODIUM
     Route: 065
  4. CALCIUM GLUBIONATE [Concomitant]
     Active Substance: CALCIUM GLUBIONATE
     Indication: Product used for unknown indication
  5. VITAMIN A [Concomitant]
     Active Substance: VITAMIN A
     Indication: Product used for unknown indication
  6. LORAZEPAM [Concomitant]
     Active Substance: LORAZEPAM
     Indication: Product used for unknown indication
  7. NICOTINAMIDE [Concomitant]
     Active Substance: NIACINAMIDE
     Indication: Product used for unknown indication
  8. ERGOCALCIFEROL [Concomitant]
     Active Substance: ERGOCALCIFEROL
     Indication: Product used for unknown indication
  9. PREVACID [Concomitant]
     Active Substance: LANSOPRAZOLE
     Indication: Product used for unknown indication
  10. INOSITOL [Concomitant]
     Active Substance: INOSITOL
     Indication: Product used for unknown indication
  11. ATIVAN [Concomitant]
     Active Substance: LORAZEPAM
     Indication: Product used for unknown indication
  12. ACETAMINOPHEN\CAFFEINE\CODEINE PHOSPHATE [Concomitant]
     Active Substance: ACETAMINOPHEN\CAFFEINE\CODEINE PHOSPHATE
     Indication: Product used for unknown indication
  13. Ginsana [Concomitant]
     Indication: Product used for unknown indication
  14. ACTEMRA [Suspect]
     Active Substance: TOCILIZUMAB
     Indication: Rheumatoid arthritis
  15. ACTEMRA [Suspect]
     Active Substance: TOCILIZUMAB
     Route: 042
  16. ACTEMRA [Suspect]
     Active Substance: TOCILIZUMAB
  17. ACTEMRA [Suspect]
     Active Substance: TOCILIZUMAB
     Route: 040
  18. ACTEMRA [Suspect]
     Active Substance: TOCILIZUMAB
     Route: 058
  19. ACTEMRA [Suspect]
     Active Substance: TOCILIZUMAB
     Route: 042
  20. ACTEMRA [Suspect]
     Active Substance: TOCILIZUMAB
  21. ACTEMRA [Suspect]
     Active Substance: TOCILIZUMAB
     Route: 058
  22. ACTEMRA [Suspect]
     Active Substance: TOCILIZUMAB
     Route: 042
  23. ACTEMRA [Suspect]
     Active Substance: TOCILIZUMAB
  24. ACTEMRA [Suspect]
     Active Substance: TOCILIZUMAB
     Route: 042
  25. ACTEMRA [Suspect]
     Active Substance: TOCILIZUMAB
     Route: 048
  26. CELEBREX [Suspect]
     Active Substance: CELECOXIB
     Indication: Rheumatoid arthritis
  27. CELEBREX [Suspect]
     Active Substance: CELECOXIB
  28. LISINOPRIL [Concomitant]
     Active Substance: LISINOPRIL
     Indication: Product used for unknown indication
  29. SULFATHIAZOLE [Suspect]
     Active Substance: SULFATHIAZOLE
     Indication: Rheumatoid arthritis
  30. DESOXIMETASONE [Suspect]
     Active Substance: DESOXIMETASONE
     Indication: Rheumatoid arthritis
     Route: 048
  31. DESOXIMETASONE [Suspect]
     Active Substance: DESOXIMETASONE
  32. DESOXIMETASONE [Suspect]
     Active Substance: DESOXIMETASONE
     Route: 058
  33. DESOXIMETASONE [Suspect]
     Active Substance: DESOXIMETASONE
  34. DESOXIMETASONE [Suspect]
     Active Substance: DESOXIMETASONE
     Route: 003
  35. DESOXIMETASONE [Suspect]
     Active Substance: DESOXIMETASONE
     Route: 058
  36. DESOXIMETASONE [Suspect]
     Active Substance: DESOXIMETASONE
     Route: 058
  37. NAPROXEN [Suspect]
     Active Substance: NAPROXEN
     Indication: Product used for unknown indication
  38. GOLIMUMAB [Suspect]
     Active Substance: GOLIMUMAB
     Indication: Rheumatoid arthritis
  39. GOLIMUMAB [Suspect]
     Active Substance: GOLIMUMAB
     Indication: Prostatic specific antigen
  40. ACTIFED (PSEUDOEPHEDRINE HYDROCHLORIDE\TRIPROLIDINE HYDROCHLORIDE) [Suspect]
     Active Substance: PSEUDOEPHEDRINE HYDROCHLORIDE\TRIPROLIDINE HYDROCHLORIDE
     Indication: Rheumatoid arthritis
  41. ACETAMINOPHEN\OXYCODONE HYDROCHLORIDE [Suspect]
     Active Substance: ACETAMINOPHEN\OXYCODONE HYDROCHLORIDE
     Indication: Product used for unknown indication
     Route: 065
  42. ACETAMINOPHEN\OXYCODONE HYDROCHLORIDE [Suspect]
     Active Substance: ACETAMINOPHEN\OXYCODONE HYDROCHLORIDE
     Route: 065
  43. ACETAMINOPHEN\OXYCODONE HYDROCHLORIDE [Suspect]
     Active Substance: ACETAMINOPHEN\OXYCODONE HYDROCHLORIDE
     Route: 065
  44. ACETAMINOPHEN\OXYCODONE HYDROCHLORIDE [Suspect]
     Active Substance: ACETAMINOPHEN\OXYCODONE HYDROCHLORIDE
     Route: 065
  45. BOTULINUM TOXIN TYPE A [Suspect]
     Active Substance: BOTULINUM TOXIN TYPE A
     Indication: Product used for unknown indication
  46. VITAMIN C [Suspect]
     Active Substance: ASCORBIC ACID
     Indication: Product used for unknown indication
  47. VITAMIN C [Suspect]
     Active Substance: ASCORBIC ACID
  48. ALENDRONIC ACID [Suspect]
     Active Substance: ALENDRONIC ACID
     Indication: Rheumatoid arthritis
     Route: 048
  49. PHENYLEPHRINE HYDROCHLORIDE [Suspect]
     Active Substance: PHENYLEPHRINE HYDROCHLORIDE
     Indication: Rheumatoid arthritis
     Route: 065
  50. PHENYLEPHRINE HYDROCHLORIDE [Suspect]
     Active Substance: PHENYLEPHRINE HYDROCHLORIDE
     Route: 065
  51. VITAMIN D3 [Suspect]
     Active Substance: CHOLECALCIFEROL
     Indication: Product used for unknown indication
     Route: 065
  52. GOLD SODIUM THIOMALATE [Suspect]
     Active Substance: GOLD SODIUM THIOMALATE
     Indication: Product used for unknown indication
     Route: 065
  53. TOFACITINIB [Suspect]
     Active Substance: TOFACITINIB
     Indication: Rheumatoid arthritis
     Dosage: 10 MG, QD (5 MG, BID)
     Route: 042
  54. TOFACITINIB [Suspect]
     Active Substance: TOFACITINIB
     Dosage: 10 MG, QD (5 MG, BID)
     Route: 042
  55. DIETARY SUPPLEMENT\HERBALS [Suspect]
     Active Substance: DIETARY SUPPLEMENT\HERBALS
     Indication: Product used for unknown indication
     Route: 065
  56. USTEKINUMAB [Suspect]
     Active Substance: USTEKINUMAB
     Indication: Product used for unknown indication
     Route: 058
  57. RITUXIMAB [Suspect]
     Active Substance: RITUXIMAB
     Indication: Rheumatoid arthritis
     Route: 040
  58. RITUXIMAB [Suspect]
     Active Substance: RITUXIMAB
     Route: 065
  59. RITUXIMAB [Suspect]
     Active Substance: RITUXIMAB
     Route: 058
  60. RITUXIMAB [Suspect]
     Active Substance: RITUXIMAB
     Route: 065
  61. RITUXIMAB [Suspect]
     Active Substance: RITUXIMAB
     Route: 058
  62. RITUXIMAB [Suspect]
     Active Substance: RITUXIMAB
     Route: 042
  63. RITUXIMAB [Suspect]
     Active Substance: RITUXIMAB
     Route: 042
  64. RITUXIMAB [Suspect]
     Active Substance: RITUXIMAB
     Route: 048
  65. RITUXIMAB [Suspect]
     Active Substance: RITUXIMAB
     Route: 058
  66. RITUXIMAB [Suspect]
     Active Substance: RITUXIMAB
     Route: 042
  67. RITUXIMAB [Suspect]
     Active Substance: RITUXIMAB
     Route: 065
  68. SULFASALAZINE [Suspect]
     Active Substance: SULFASALAZINE
     Indication: Rheumatoid arthritis
     Route: 048
  69. SULFASALAZINE [Suspect]
     Active Substance: SULFASALAZINE
     Route: 058
  70. SULFASALAZINE [Suspect]
     Active Substance: SULFASALAZINE
     Route: 048
  71. SULFASALAZINE [Suspect]
     Active Substance: SULFASALAZINE
     Dosage: 200 MG, QD (100 MILLIGRAM, BID)
     Route: 048
  72. SULFASALAZINE [Suspect]
     Active Substance: SULFASALAZINE
     Route: 048
  73. SULFASALAZINE [Suspect]
     Active Substance: SULFASALAZINE
     Route: 048
  74. SULFASALAZINE [Suspect]
     Active Substance: SULFASALAZINE
     Dosage: 2 DOSAGE FORM, QD (1 DOSAGE FORM, BID)
     Route: 048
  75. SULFASALAZINE [Suspect]
     Active Substance: SULFASALAZINE
     Route: 048
  76. SULFASALAZINE [Suspect]
     Active Substance: SULFASALAZINE
     Route: 065
  77. SULFASALAZINE [Suspect]
     Active Substance: SULFASALAZINE
     Route: 048
  78. SULFASALAZINE [Suspect]
     Active Substance: SULFASALAZINE
     Route: 048
  79. HUMIRA [Suspect]
     Active Substance: ADALIMUMAB
     Indication: Rheumatoid arthritis
     Route: 058
  80. HUMIRA [Suspect]
     Active Substance: ADALIMUMAB
     Route: 048
  81. HUMIRA [Suspect]
     Active Substance: ADALIMUMAB
     Route: 058
  82. HUMIRA [Suspect]
     Active Substance: ADALIMUMAB
     Route: 058
  83. LEFLUNOMIDE [Suspect]
     Active Substance: LEFLUNOMIDE
     Indication: Rheumatoid arthritis
     Route: 065
  84. LEFLUNOMIDE [Suspect]
     Active Substance: LEFLUNOMIDE
     Route: 065
  85. LEFLUNOMIDE [Suspect]
     Active Substance: LEFLUNOMIDE
     Route: 065
  86. LEFLUNOMIDE [Suspect]
     Active Substance: LEFLUNOMIDE
     Route: 065
  87. LEFLUNOMIDE [Suspect]
     Active Substance: LEFLUNOMIDE
     Route: 065
  88. LEFLUNOMIDE [Suspect]
     Active Substance: LEFLUNOMIDE
     Route: 048
  89. LEFLUNOMIDE [Suspect]
     Active Substance: LEFLUNOMIDE
     Route: 048
  90. LEFLUNOMIDE [Suspect]
     Active Substance: LEFLUNOMIDE
     Route: 048
  91. LEFLUNOMIDE [Suspect]
     Active Substance: LEFLUNOMIDE
     Route: 048
  92. LEFLUNOMIDE [Suspect]
     Active Substance: LEFLUNOMIDE
     Route: 048
  93. DICLOFENAC POTASSIUM [Suspect]
     Active Substance: DICLOFENAC POTASSIUM
     Indication: Product used for unknown indication
     Route: 065
  94. SIMPONI [Suspect]
     Active Substance: GOLIMUMAB
     Indication: Rheumatoid arthritis
     Route: 058
  95. SIMPONI [Suspect]
     Active Substance: GOLIMUMAB
     Indication: Prostatic specific antigen
     Route: 065
  96. SIMPONI [Suspect]
     Active Substance: GOLIMUMAB
     Route: 065
  97. SIMPONI [Suspect]
     Active Substance: GOLIMUMAB
     Route: 058
  98. SIMPONI [Suspect]
     Active Substance: GOLIMUMAB
     Route: 058
  99. SIMPONI [Suspect]
     Active Substance: GOLIMUMAB
     Route: 042
  100. TOPAMAX [Suspect]
     Active Substance: TOPIRAMATE
     Indication: Migraine
     Route: 065
  101. TOFACITINIB CITRATE [Suspect]
     Active Substance: TOFACITINIB CITRATE
     Indication: Rheumatoid arthritis
     Route: 065
  102. TOFACITINIB CITRATE [Suspect]
     Active Substance: TOFACITINIB CITRATE
     Dosage: 10 MG, QD (5 MILLIGRAM BID)
     Route: 065
  103. TRAMADOL HYDROCHLORIDE [Suspect]
     Active Substance: TRAMADOL HYDROCHLORIDE
     Indication: Product used for unknown indication
     Route: 065
  104. TRAMADOL HYDROCHLORIDE AND ACETAMINOPHEN [Suspect]
     Active Substance: ACETAMINOPHEN\TRAMADOL HYDROCHLORIDE
     Indication: Product used for unknown indication
     Route: 065
  105. TRIAMCINOLONE ACETONIDE [Suspect]
     Active Substance: TRIAMCINOLONE ACETONIDE
     Indication: Rheumatoid arthritis
     Route: 065
  106. CETIRIZINE HYDROCHLORIDE\PSEUDOEPHEDRINE HYDROCHLORIDE [Suspect]
     Active Substance: CETIRIZINE HYDROCHLORIDE\PSEUDOEPHEDRINE HYDROCHLORIDE
     Indication: Off label use
     Route: 065
  107. CETIRIZINE HYDROCHLORIDE\PSEUDOEPHEDRINE HYDROCHLORIDE [Suspect]
     Active Substance: CETIRIZINE HYDROCHLORIDE\PSEUDOEPHEDRINE HYDROCHLORIDE
     Indication: Rheumatoid arthritis
     Route: 065
  108. CETIRIZINE HYDROCHLORIDE\PSEUDOEPHEDRINE HYDROCHLORIDE [Suspect]
     Active Substance: CETIRIZINE HYDROCHLORIDE\PSEUDOEPHEDRINE HYDROCHLORIDE
     Route: 065
  109. CETIRIZINE HYDROCHLORIDE\PSEUDOEPHEDRINE HYDROCHLORIDE [Suspect]
     Active Substance: CETIRIZINE HYDROCHLORIDE\PSEUDOEPHEDRINE HYDROCHLORIDE
     Route: 065
  110. CETIRIZINE HYDROCHLORIDE\PSEUDOEPHEDRINE HYDROCHLORIDE [Suspect]
     Active Substance: CETIRIZINE HYDROCHLORIDE\PSEUDOEPHEDRINE HYDROCHLORIDE
     Route: 065
  111. TOPIRAMATE [Suspect]
     Active Substance: TOPIRAMATE
     Indication: Migraine
     Route: 065
  112. TOPIRAMATE [Suspect]
     Active Substance: TOPIRAMATE
     Route: 065
  113. TOPIRAMATE [Suspect]
     Active Substance: TOPIRAMATE
     Route: 065
  114. TOPIRAMATE [Suspect]
     Active Substance: TOPIRAMATE
     Route: 065
  115. XELJANZ [Suspect]
     Active Substance: TOFACITINIB CITRATE
     Indication: Rheumatoid arthritis
     Route: 065
  116. XELJANZ [Suspect]
     Active Substance: TOFACITINIB CITRATE
     Route: 065
  117. XELJANZ [Suspect]
     Active Substance: TOFACITINIB CITRATE
     Route: 065
  118. XELJANZ [Suspect]
     Active Substance: TOFACITINIB CITRATE
     Route: 065
  119. XELJANZ [Suspect]
     Active Substance: TOFACITINIB CITRATE
     Route: 065
  120. XELJANZ [Suspect]
     Active Substance: TOFACITINIB CITRATE
  121. XELJANZ [Suspect]
     Active Substance: TOFACITINIB CITRATE
     Route: 065
  122. XELJANZ [Suspect]
     Active Substance: TOFACITINIB CITRATE
     Route: 065
  123. IBUPROFEN [Concomitant]
     Active Substance: IBUPROFEN
     Indication: Product used for unknown indication
  124. HYDROCORTISONE [Suspect]
     Active Substance: HYDROCORTISONE
     Indication: Product used for unknown indication
     Route: 065
  125. HYDROCORTISONE [Suspect]
     Active Substance: HYDROCORTISONE
     Route: 048
  126. ISOPROPYL ALCOHOL [Suspect]
     Active Substance: ISOPROPYL ALCOHOL
     Indication: Product used for unknown indication
  127. ISOPROPYL ALCOHOL [Suspect]
     Active Substance: ISOPROPYL ALCOHOL
  128. SULFAMETHOXAZOLE\TRIMETHOPRIM [Suspect]
     Active Substance: SULFAMETHOXAZOLE\TRIMETHOPRIM
     Indication: Product used for unknown indication
  129. SULFAMETHOXAZOLE\TRIMETHOPRIM [Suspect]
     Active Substance: SULFAMETHOXAZOLE\TRIMETHOPRIM
  130. PERIOGARD [Suspect]
     Active Substance: CHLORHEXIDINE GLUCONATE
     Indication: Product used for unknown indication
     Route: 002
  131. PERIOGARD [Suspect]
     Active Substance: CHLORHEXIDINE GLUCONATE
  132. PERIOGARD [Suspect]
     Active Substance: CHLORHEXIDINE GLUCONATE
     Route: 002
  133. RISEDRONATE SODIUM [Concomitant]
     Active Substance: RISEDRONATE SODIUM
     Indication: Product used for unknown indication
     Route: 065
  134. VITAMIN C [Suspect]
     Active Substance: ASCORBIC ACID
     Indication: Product used for unknown indication
     Route: 065
  135. INFLIXIMAB [Suspect]
     Active Substance: INFLIXIMAB
     Indication: Rheumatoid arthritis
     Route: 065
  136. INFLIXIMAB [Suspect]
     Active Substance: INFLIXIMAB
     Indication: Colitis ulcerative
     Route: 042
  137. INFLIXIMAB [Suspect]
     Active Substance: INFLIXIMAB
     Route: 042
  138. INFLIXIMAB [Suspect]
     Active Substance: INFLIXIMAB
     Route: 065
  139. THIAMINE HYDROCHLORIDE [Concomitant]
     Active Substance: THIAMINE HYDROCHLORIDE
     Indication: Product used for unknown indication
  140. NAPROXEN [Suspect]
     Active Substance: NAPROXEN
     Indication: Product used for unknown indication
     Route: 065
  141. CALCIUM GLUBIONATE [Suspect]
     Active Substance: CALCIUM GLUBIONATE
     Indication: Product used for unknown indication
  142. CALCIUM GLUBIONATE [Suspect]
     Active Substance: CALCIUM GLUBIONATE
     Route: 065
  143. CALCIUM GLUBIONATE [Suspect]
     Active Substance: CALCIUM GLUBIONATE
     Route: 048
  144. CALCIUM GLUBIONATE [Suspect]
     Active Substance: CALCIUM GLUBIONATE
  145. PREDNISONE [Suspect]
     Active Substance: PREDNISONE
     Indication: Rheumatoid arthritis
     Route: 065
  146. ENTYVIO [Suspect]
     Active Substance: VEDOLIZUMAB
     Indication: Product used for unknown indication
     Route: 065
  147. CHLORHEXIDINE GLUCONATE [Suspect]
     Active Substance: CHLORHEXIDINE GLUCONATE
     Indication: Product used for unknown indication
     Route: 065
  148. CHLORHEXIDINE GLUCONATE [Suspect]
     Active Substance: CHLORHEXIDINE GLUCONATE
     Route: 061
  149. CHLORHEXIDINE GLUCONATE [Suspect]
     Active Substance: CHLORHEXIDINE GLUCONATE
     Route: 065
  150. SOLU-MEDROL [Suspect]
     Active Substance: METHYLPREDNISOLONE SODIUM SUCCINATE
     Indication: Product used for unknown indication
     Route: 065
  151. CETIRIZINE [Suspect]
     Active Substance: CETIRIZINE HYDROCHLORIDE
     Indication: Rheumatoid arthritis
     Route: 065
  152. CETIRIZINE [Suspect]
     Active Substance: CETIRIZINE HYDROCHLORIDE
     Indication: Off label use
     Route: 065
  153. CETIRIZINE [Suspect]
     Active Substance: CETIRIZINE HYDROCHLORIDE
     Route: 048
  154. CETIRIZINE [Suspect]
     Active Substance: CETIRIZINE HYDROCHLORIDE
     Route: 016
  155. CETIRIZINE [Suspect]
     Active Substance: CETIRIZINE HYDROCHLORIDE
     Route: 065
  156. CETIRIZINE [Suspect]
     Active Substance: CETIRIZINE HYDROCHLORIDE
     Route: 048
  157. CETIRIZINE [Suspect]
     Active Substance: CETIRIZINE HYDROCHLORIDE
     Route: 048
  158. CETIRIZINE [Suspect]
     Active Substance: CETIRIZINE HYDROCHLORIDE
     Route: 048
  159. SULFAMETHOXAZOLE [Suspect]
     Active Substance: SULFAMETHOXAZOLE
     Indication: Product used for unknown indication
     Route: 065
  160. SULFAMETHOXAZOLE [Suspect]
     Active Substance: SULFAMETHOXAZOLE
     Route: 065
  161. CALCIUM CARBONATE [Suspect]
     Active Substance: CALCIUM CARBONATE
     Indication: Product used for unknown indication
     Route: 065
  162. ZOPICLONE [Concomitant]
     Active Substance: ZOPICLONE
     Indication: Product used for unknown indication
  163. ZESTRIL [Concomitant]
     Active Substance: LISINOPRIL
     Indication: Product used for unknown indication
  164. DICLOFENAC [Suspect]
     Active Substance: DICLOFENAC
     Indication: Product used for unknown indication
     Route: 065
  165. REMICADE [Suspect]
     Active Substance: INFLIXIMAB
     Indication: Rheumatoid arthritis
     Route: 065
  166. REMICADE [Suspect]
     Active Substance: INFLIXIMAB
     Indication: Psoriatic arthropathy
     Route: 065
  167. REMICADE [Suspect]
     Active Substance: INFLIXIMAB
     Indication: Crohn^s disease
     Route: 065
  168. REMICADE [Suspect]
     Active Substance: INFLIXIMAB
     Indication: Ankylosing spondylitis
     Route: 065
  169. REMICADE [Suspect]
     Active Substance: INFLIXIMAB
     Indication: Colitis ulcerative
     Route: 042
  170. REMICADE [Suspect]
     Active Substance: INFLIXIMAB
     Indication: Arthropathy
     Route: 065
  171. REMICADE [Suspect]
     Active Substance: INFLIXIMAB
     Route: 065
  172. REMICADE [Suspect]
     Active Substance: INFLIXIMAB
     Route: 065
  173. REMICADE [Suspect]
     Active Substance: INFLIXIMAB
     Route: 065
  174. REMICADE [Suspect]
     Active Substance: INFLIXIMAB
     Route: 065
  175. REMICADE [Suspect]
     Active Substance: INFLIXIMAB
     Route: 065
  176. REMICADE [Suspect]
     Active Substance: INFLIXIMAB
     Route: 065
  177. FISH OIL [Concomitant]
     Active Substance: FISH OIL
     Indication: Product used for unknown indication
  178. PSEUDOEPHEDRINE HYDROCHLORIDE [Suspect]
     Active Substance: PSEUDOEPHEDRINE HYDROCHLORIDE
     Indication: Rheumatoid arthritis
  179. PSEUDOEPHEDRINE HYDROCHLORIDE [Suspect]
     Active Substance: PSEUDOEPHEDRINE HYDROCHLORIDE
     Route: 065
  180. PSEUDOEPHEDRINE HYDROCHLORIDE [Suspect]
     Active Substance: PSEUDOEPHEDRINE HYDROCHLORIDE
     Route: 065
  181. PSEUDOEPHEDRINE HYDROCHLORIDE [Suspect]
     Active Substance: PSEUDOEPHEDRINE HYDROCHLORIDE
     Route: 065
  182. PSEUDOEPHEDRINE HYDROCHLORIDE [Suspect]
     Active Substance: PSEUDOEPHEDRINE HYDROCHLORIDE
     Route: 065
  183. PSEUDOEPHEDRINE HYDROCHLORIDE [Suspect]
     Active Substance: PSEUDOEPHEDRINE HYDROCHLORIDE
     Route: 065
  184. PREDNISONE [Suspect]
     Active Substance: PREDNISONE
     Indication: Rheumatoid arthritis
     Route: 065
  185. PREDNISONE [Suspect]
     Active Substance: PREDNISONE
     Route: 048
  186. PREDNISONE [Suspect]
     Active Substance: PREDNISONE
     Route: 048
  187. PREDNISONE [Suspect]
     Active Substance: PREDNISONE
     Route: 065
  188. PREDNISONE [Suspect]
     Active Substance: PREDNISONE
     Route: 048
  189. PREDNISONE [Suspect]
     Active Substance: PREDNISONE
     Route: 048
  190. PREDNISONE [Suspect]
     Active Substance: PREDNISONE
     Route: 048
  191. PREDNISONE [Suspect]
     Active Substance: PREDNISONE
     Route: 065
  192. PREDNISONE [Suspect]
     Active Substance: PREDNISONE
     Route: 065
  193. PREDNISONE [Suspect]
     Active Substance: PREDNISONE
     Route: 065
  194. PREDNISONE [Suspect]
     Active Substance: PREDNISONE
     Route: 065
  195. PHTHALYLSULFATHIAZOLE [Suspect]
     Active Substance: PHTHALYLSULFATHIAZOLE
     Indication: Rheumatoid arthritis
  196. PHTHALYLSULFATHIAZOLE [Suspect]
     Active Substance: PHTHALYLSULFATHIAZOLE
     Route: 065
  197. PHTHALYLSULFATHIAZOLE [Suspect]
     Active Substance: PHTHALYLSULFATHIAZOLE
     Route: 065
  198. PHTHALYLSULFATHIAZOLE [Suspect]
     Active Substance: PHTHALYLSULFATHIAZOLE
     Route: 048
  199. PHTHALYLSULFATHIAZOLE [Suspect]
     Active Substance: PHTHALYLSULFATHIAZOLE
     Route: 065
  200. PHTHALYLSULFATHIAZOLE [Suspect]
     Active Substance: PHTHALYLSULFATHIAZOLE
     Route: 048
  201. PHTHALYLSULFATHIAZOLE [Suspect]
     Active Substance: PHTHALYLSULFATHIAZOLE
     Route: 065
  202. PHTHALYLSULFATHIAZOLE [Suspect]
     Active Substance: PHTHALYLSULFATHIAZOLE
     Route: 048
  203. POTASSIUM ASPARTATE [Concomitant]
     Active Substance: POTASSIUM ASPARTATE
     Indication: Product used for unknown indication
     Route: 065
  204. ORENCIA [Suspect]
     Active Substance: ABATACEPT
     Indication: Rheumatoid arthritis
     Route: 065
  205. ORENCIA [Suspect]
     Active Substance: ABATACEPT
     Route: 042
  206. ORENCIA [Suspect]
     Active Substance: ABATACEPT
     Route: 042
  207. ORENCIA [Suspect]
     Active Substance: ABATACEPT
     Route: 067
  208. ORENCIA [Suspect]
     Active Substance: ABATACEPT
     Route: 042
  209. ORENCIA [Suspect]
     Active Substance: ABATACEPT
     Route: 042
  210. ORENCIA [Suspect]
     Active Substance: ABATACEPT
     Route: 058
  211. ORENCIA [Suspect]
     Active Substance: ABATACEPT
     Route: 040
  212. NUCALA [Suspect]
     Active Substance: MEPOLIZUMAB
     Indication: Product used for unknown indication
     Route: 065
  213. NAPROXEN SODIUM [Suspect]
     Active Substance: NAPROXEN SODIUM
     Indication: Rheumatoid arthritis
  214. NAPROXEN [Suspect]
     Active Substance: NAPROXEN
     Indication: Product used for unknown indication
  215. MYRBETRIQ [Suspect]
     Active Substance: MIRABEGRON
     Indication: Product used for unknown indication
  216. METHYLPREDNISOLONE SODIUM SUCCINATE [Suspect]
     Active Substance: METHYLPREDNISOLONE SODIUM SUCCINATE
     Indication: Product used for unknown indication
  217. METHOTREXATE [Suspect]
     Active Substance: METHOTREXATE
     Indication: Rheumatoid arthritis
     Route: 048
  218. METHOTREXATE [Suspect]
     Active Substance: METHOTREXATE
     Route: 048
  219. METHOTREXATE [Suspect]
     Active Substance: METHOTREXATE
     Route: 048
  220. METHOTREXATE [Suspect]
     Active Substance: METHOTREXATE
     Route: 048
  221. METHOTREXATE [Suspect]
     Active Substance: METHOTREXATE
     Route: 048
  222. METHOTREXATE [Suspect]
     Active Substance: METHOTREXATE
     Route: 048
  223. METHOTREXATE [Suspect]
     Active Substance: METHOTREXATE
     Route: 013
  224. METHOTREXATE [Suspect]
     Active Substance: METHOTREXATE
     Route: 058
  225. METHOTREXATE [Suspect]
     Active Substance: METHOTREXATE
     Route: 048
  226. METHOTREXATE [Suspect]
     Active Substance: METHOTREXATE
     Route: 013
  227. METHOTREXATE [Suspect]
     Active Substance: METHOTREXATE
     Route: 048
  228. METHOTREXATE [Suspect]
     Active Substance: METHOTREXATE
  229. METHOTREXATE [Suspect]
     Active Substance: METHOTREXATE
     Route: 014
  230. METFORMIN HYDROCHLORIDE [Suspect]
     Active Substance: METFORMIN HYDROCHLORIDE
     Indication: Product used for unknown indication
  231. METFORMIN HYDROCHLORIDE [Suspect]
     Active Substance: METFORMIN HYDROCHLORIDE
     Indication: Migraine
  232. LAMICTAL [Suspect]
     Active Substance: LAMOTRIGINE
     Indication: Product used for unknown indication
     Route: 048
  233. GOLD SODIUM THIOMALATE [Suspect]
     Active Substance: GOLD SODIUM THIOMALATE
     Indication: Product used for unknown indication
  234. MARVELON [Concomitant]
     Active Substance: DESOGESTREL\ETHINYL ESTRADIOL
     Indication: Product used for unknown indication
  235. ENBREL [Suspect]
     Active Substance: ETANERCEPT
     Indication: Rheumatoid arthritis
     Route: 058
  236. ENBREL [Suspect]
     Active Substance: ETANERCEPT
     Indication: Psoriatic arthropathy
     Route: 058
  237. ENBREL [Suspect]
     Active Substance: ETANERCEPT
     Route: 048
  238. ENBREL [Suspect]
     Active Substance: ETANERCEPT
     Route: 065
  239. ENBREL [Suspect]
     Active Substance: ETANERCEPT
     Route: 058
  240. ENBREL [Suspect]
     Active Substance: ETANERCEPT
     Route: 058
  241. ENBREL [Suspect]
     Active Substance: ETANERCEPT
     Route: 058
  242. ENBREL [Suspect]
     Active Substance: ETANERCEPT
     Route: 058
  243. ENBREL [Suspect]
     Active Substance: ETANERCEPT
     Route: 058
  244. ENBREL [Suspect]
     Active Substance: ETANERCEPT
  245. ENBREL [Suspect]
     Active Substance: ETANERCEPT
     Route: 058
  246. ENBREL [Suspect]
     Active Substance: ETANERCEPT
     Route: 065
  247. ENBREL [Suspect]
     Active Substance: ETANERCEPT
     Route: 058
  248. ENBREL [Suspect]
     Active Substance: ETANERCEPT
     Route: 058
  249. ENBREL [Suspect]
     Active Substance: ETANERCEPT
     Route: 058
  250. ENBREL [Suspect]
     Active Substance: ETANERCEPT
     Route: 058
  251. ENBREL [Suspect]
     Active Substance: ETANERCEPT
     Route: 058
  252. ENBREL [Suspect]
     Active Substance: ETANERCEPT
     Route: 058
  253. ENBREL [Suspect]
     Active Substance: ETANERCEPT
     Route: 065
  254. DOMPERIDONE MALEATE [Suspect]
     Active Substance: DOMPERIDONE MALEATE
     Indication: Rheumatoid arthritis
  255. FOLIC ACID [Suspect]
     Active Substance: FOLIC ACID
     Indication: Rheumatoid arthritis
  256. FOLIC ACID [Suspect]
     Active Substance: FOLIC ACID
     Route: 048
  257. FOLIC ACID [Suspect]
     Active Substance: FOLIC ACID
  258. FOLIC ACID [Suspect]
     Active Substance: FOLIC ACID
     Route: 048
  259. FOLIC ACID [Suspect]
     Active Substance: FOLIC ACID
     Route: 048
  260. FOLIC ACID [Suspect]
     Active Substance: FOLIC ACID
     Route: 058
  261. FOLIC ACID [Suspect]
     Active Substance: FOLIC ACID
     Route: 065
  262. CIMZIA [Suspect]
     Active Substance: CERTOLIZUMAB PEGOL
     Indication: Rheumatoid arthritis
     Route: 058
  263. CIMZIA [Suspect]
     Active Substance: CERTOLIZUMAB PEGOL
     Route: 058
  264. CIMZIA [Suspect]
     Active Substance: CERTOLIZUMAB PEGOL
     Route: 065
  265. CIMZIA [Suspect]
     Active Substance: CERTOLIZUMAB PEGOL
     Route: 065
  266. ACETAMINOPHEN AND CODEINE [Suspect]
     Active Substance: ACETAMINOPHEN\CODEINE PHOSPHATE
     Indication: Psoriasis
  267. ACETAMINOPHEN AND CODEINE [Suspect]
     Active Substance: ACETAMINOPHEN\CODEINE PHOSPHATE
     Indication: Rheumatoid arthritis
  268. BERINERT [Suspect]
     Active Substance: HUMAN C1-ESTERASE INHIBITOR
     Indication: Rheumatoid arthritis
  269. VOLTAREN [Suspect]
     Active Substance: DICLOFENAC SODIUM
     Indication: Product used for unknown indication
     Route: 065
  270. OTEZLA [Suspect]
     Active Substance: APREMILAST
     Indication: Rheumatoid arthritis
     Route: 048
  271. OTEZLA [Suspect]
     Active Substance: APREMILAST
     Route: 048
  272. OTEZLA [Suspect]
     Active Substance: APREMILAST
     Route: 065
  273. OTEZLA [Suspect]
     Active Substance: APREMILAST
     Route: 048
  274. OTEZLA [Suspect]
     Active Substance: APREMILAST
     Route: 065
  275. OTEZLA [Suspect]
     Active Substance: APREMILAST
     Route: 065
  276. ARAVA [Suspect]
     Active Substance: LEFLUNOMIDE
     Indication: Rheumatoid arthritis
     Route: 048
  277. ARAVA [Suspect]
     Active Substance: LEFLUNOMIDE
     Route: 048
  278. ARAVA [Suspect]
     Active Substance: LEFLUNOMIDE
     Route: 048
  279. BUTRANS [Suspect]
     Active Substance: BUPRENORPHINE
     Indication: Product used for unknown indication
  280. CANDESARTAN [Suspect]
     Active Substance: CANDESARTAN
     Indication: Migraine
     Route: 048
  281. FOSAMAX [Suspect]
     Active Substance: ALENDRONATE SODIUM
     Indication: Product used for unknown indication
     Route: 048
  282. FOSAMAX [Suspect]
     Active Substance: ALENDRONATE SODIUM
     Route: 065
  283. VALINE [Concomitant]
     Active Substance: VALINE
     Indication: Product used for unknown indication
  284. PREDNISONE [Suspect]
     Active Substance: PREDNISONE
     Indication: Rheumatoid arthritis
     Route: 048
  285. PREDNISONE [Suspect]
     Active Substance: PREDNISONE
     Indication: Condition aggravated
  286. PREDNISONE [Suspect]
     Active Substance: PREDNISONE
     Route: 042
  287. PREDNISONE [Suspect]
     Active Substance: PREDNISONE
     Route: 048
  288. ERELZI [Suspect]
     Active Substance: ETANERCEPT-SZZS
     Indication: Rheumatoid arthritis
     Route: 058
  289. ERELZI [Suspect]
     Active Substance: ETANERCEPT-SZZS
  290. ERELZI [Suspect]
     Active Substance: ETANERCEPT-SZZS
     Route: 058
  291. ACETAMINOPHEN [Suspect]
     Active Substance: ACETAMINOPHEN
     Indication: Product used for unknown indication
  292. ACETAMINOPHEN [Suspect]
     Active Substance: ACETAMINOPHEN
     Route: 016
  293. ACETAMINOPHEN [Suspect]
     Active Substance: ACETAMINOPHEN
  294. ACETAMINOPHEN [Suspect]
     Active Substance: ACETAMINOPHEN
     Indication: Product used for unknown indication
     Route: 016
  295. ACETAMINOPHEN [Suspect]
     Active Substance: ACETAMINOPHEN
     Route: 065
  296. ACETAMINOPHEN [Suspect]
     Active Substance: ACETAMINOPHEN
     Route: 065
  297. PANTOPRAZOLE SODIUM [Suspect]
     Active Substance: PANTOPRAZOLE SODIUM
     Indication: Product used for unknown indication
     Route: 016

REACTIONS (140)
  - Pulmonary fibrosis [Fatal]
  - Gastrooesophageal reflux disease [Fatal]
  - Folliculitis [Fatal]
  - Fibromyalgia [Fatal]
  - Fatigue [Fatal]
  - Facet joint syndrome [Fatal]
  - Epilepsy [Fatal]
  - Duodenal ulcer perforation [Fatal]
  - Dry mouth [Fatal]
  - Dizziness [Fatal]
  - Discomfort [Fatal]
  - Diarrhoea [Fatal]
  - Depression [Fatal]
  - Confusional state [Fatal]
  - Condition aggravated [Fatal]
  - Bursitis [Fatal]
  - Breast cancer stage III [Fatal]
  - Blood cholesterol increased [Fatal]
  - Blister [Fatal]
  - Blepharospasm [Fatal]
  - Asthenia [Fatal]
  - Memory impairment [Fatal]
  - Adjustment disorder with depressed mood [Fatal]
  - Infusion related reaction [Fatal]
  - Nail disorder [Fatal]
  - Lung disorder [Fatal]
  - Amnesia [Fatal]
  - Lower respiratory tract infection [Fatal]
  - Musculoskeletal pain [Fatal]
  - Liver injury [Fatal]
  - Osteoarthritis [Fatal]
  - Lip dry [Fatal]
  - Night sweats [Fatal]
  - Joint range of motion decreased [Fatal]
  - Nasopharyngitis [Fatal]
  - Maternal exposure during pregnancy [Fatal]
  - Obesity [Fatal]
  - Irritable bowel syndrome [Fatal]
  - Pain [Fatal]
  - Joint swelling [Fatal]
  - Muscle injury [Fatal]
  - Migraine [Fatal]
  - Muscle spasms [Fatal]
  - Paraesthesia [Fatal]
  - Pemphigus [Fatal]
  - Pericarditis [Fatal]
  - Peripheral swelling [Fatal]
  - Peripheral venous disease [Fatal]
  - Psoriatic arthropathy [Fatal]
  - Rash [Fatal]
  - Rheumatoid arthritis [Fatal]
  - Stomatitis [Fatal]
  - Swelling [Fatal]
  - Synovitis [Fatal]
  - Systemic lupus erythematosus [Fatal]
  - Taste disorder [Fatal]
  - Type 2 diabetes mellitus [Fatal]
  - Urticaria [Fatal]
  - Vomiting [Fatal]
  - Weight increased [Fatal]
  - Wheezing [Fatal]
  - Wound [Fatal]
  - Wound infection [Fatal]
  - Product quality issue [Fatal]
  - Drug ineffective [Fatal]
  - Off label use [Fatal]
  - Drug intolerance [Fatal]
  - Intentional product use issue [Fatal]
  - Product use in unapproved indication [Fatal]
  - Oedema [Fatal]
  - Oedema peripheral [Fatal]
  - Pain in extremity [Fatal]
  - Psoriasis [Fatal]
  - Pustular psoriasis [Fatal]
  - Pyrexia [Fatal]
  - Rash vesicular [Fatal]
  - Rheumatic fever [Fatal]
  - Rheumatoid factor positive [Fatal]
  - Sinusitis [Fatal]
  - Sleep disorder [Fatal]
  - Sleep disorder due to a general medical condition [Fatal]
  - Subcutaneous drug absorption impaired [Fatal]
  - Swollen joint count increased [Fatal]
  - Weight decreased [Fatal]
  - Anti-cyclic citrullinated peptide antibody positive [Fatal]
  - Back disorder [Fatal]
  - Breast cancer stage II [Fatal]
  - C-reactive protein abnormal [Fatal]
  - Chest pain [Fatal]
  - Contusion [Fatal]
  - Decreased appetite [Fatal]
  - Delirium [Fatal]
  - Disability [Fatal]
  - Dislocation of vertebra [Fatal]
  - Drug hypersensitivity [Fatal]
  - Dyspepsia [Fatal]
  - Fluid retention [Fatal]
  - Gait disturbance [Fatal]
  - Gait inability [Fatal]
  - Gastrointestinal disorder [Fatal]
  - General symptom [Fatal]
  - Grip strength decreased [Fatal]
  - Headache [Fatal]
  - Hypersensitivity [Fatal]
  - Ill-defined disorder [Fatal]
  - Infection [Fatal]
  - Injury [Fatal]
  - Malaise [Fatal]
  - Mobility decreased [Fatal]
  - Musculoskeletal stiffness [Fatal]
  - Myositis [Fatal]
  - Dyspnoea [Fatal]
  - Nausea [Fatal]
  - Pneumonia [Fatal]
  - Pruritus [Fatal]
  - X-ray abnormal [Fatal]
  - Inflammation [Fatal]
  - Impaired healing [Fatal]
  - Hypertension [Fatal]
  - Hypoaesthesia [Fatal]
  - Hypercholesterolaemia [Fatal]
  - Hepatic enzyme increased [Fatal]
  - Hand deformity [Fatal]
  - Helicobacter infection [Fatal]
  - Glossodynia [Fatal]
  - General physical health deterioration [Fatal]
  - Arthropathy [Fatal]
  - Arthralgia [Fatal]
  - Alopecia [Fatal]
  - Abdominal pain upper [Fatal]
  - Abdominal pain [Fatal]
  - Abdominal discomfort [Fatal]
  - Adverse event [Fatal]
  - Adverse drug reaction [Fatal]
  - Hip arthroplasty [Fatal]
  - Knee arthroplasty [Fatal]
  - Walking aid user [Fatal]
  - C-reactive protein increased [Fatal]
  - Bone erosion [Fatal]
  - Deep vein thrombosis postoperative [Fatal]
